FAERS Safety Report 15602522 (Version 1)
Quarter: 2018Q4

REPORT INFORMATION
  Report Type: Spontaneous
  Country: US (occurrence: US)
  Receive Date: 20181107
  Receipt Date: 20181107
  Transmission Date: 20190205
  Serious: No
  Sender: FDA-Public Use
  Company Number: None

PATIENT
  Age: 29 Year
  Sex: Female
  Weight: 65.77 kg

DRUGS (3)
  1. CEFUROXIME. [Concomitant]
     Active Substance: CEFUROXIME
  2. PARAGARD T 380A [Suspect]
     Active Substance: COPPER
     Dates: start: 20161116, end: 20180927
  3. METRONIDAZOLE. [Concomitant]
     Active Substance: METRONIDAZOLE

REACTIONS (5)
  - Endometritis [None]
  - Haemorrhage [None]
  - Vaginal odour [None]
  - Pain [None]
  - Bacterial vaginosis [None]

NARRATIVE: CASE EVENT DATE: 20180927
